FAERS Safety Report 21812516 (Version 2)
Quarter: 2023Q1

REPORT INFORMATION
  Report Type: Spontaneous
  Country: US (occurrence: US)
  Receive Date: 20230103
  Receipt Date: 20230110
  Transmission Date: 20230418
  Serious: Yes (Other)
  Sender: FDA-Public Use
  Company Number: US-GUERBET / LLC-US-20220114

PATIENT
  Sex: Male

DRUGS (1)
  1. DOTAREM [Suspect]
     Active Substance: GADOTERATE MEGLUMINE
     Indication: Magnetic resonance imaging head
     Route: 042
     Dates: start: 20220328, end: 20220328

REACTIONS (9)
  - Muscle twitching [Unknown]
  - Tremor [Unknown]
  - Muscle atrophy [Unknown]
  - Feeling abnormal [Unknown]
  - Insomnia [Unknown]
  - Amnesia [Unknown]
  - Skin atrophy [Unknown]
  - Alopecia [Unknown]
  - Vitamin D deficiency [Unknown]

NARRATIVE: CASE EVENT DATE: 20220401
